FAERS Safety Report 8458217-5 (Version None)
Quarter: 2012Q2

REPORT INFORMATION
  Report Type: 
  Country: None (occurrence: None)
  Receive Date: 20120622
  Receipt Date: 20120614
  Transmission Date: 20120825
  Serious: Yes (Other)
  Sender: FDA-Public Use
  Company Number: US-US-EMD SERONO, INC.-7141266

PATIENT
  Sex: Male

DRUGS (1)
  1. REBIF [Suspect]
     Indication: PRODUCT USED FOR UNKNOWN INDICATION
     Route: 058
     Dates: start: 20120330

REACTIONS (6)
  - PAIN [None]
  - INJECTION SITE REACTION [None]
  - INJECTION SITE PAIN [None]
  - LIVEDO RETICULARIS [None]
  - SYSTEMIC LUPUS ERYTHEMATOSUS [None]
  - FATIGUE [None]
